FAERS Safety Report 8229627-6 (Version None)
Quarter: 2012Q1

REPORT INFORMATION
  Report Type: 
  Country: None (occurrence: None)
  Receive Date: 20120322
  Receipt Date: 20120313
  Transmission Date: 20120608
  Serious: Yes (Hospitalization, Other)
  Sender: FDA-Public Use
  Company Number: PHEH2011US05174

PATIENT
  Age: 59 Year
  Sex: Male
  Weight: 170 kg

DRUGS (1)
  1. GILENYA [Suspect]
     Indication: MULTIPLE SCLEROSIS
     Dosage: 0.5 MG, QD
     Route: 048
     Dates: start: 20110615

REACTIONS (4)
  - IMPAIRED HEALING [None]
  - LIMB DISCOMFORT [None]
  - MOVEMENT DISORDER [None]
  - ABSCESS LIMB [None]
